FAERS Safety Report 7635115-8 (Version None)
Quarter: 2011Q3

REPORT INFORMATION
  Report Type: 
  Country: None (occurrence: None)
  Receive Date: 20110718
  Receipt Date: 20110712
  Transmission Date: 20111222
  Serious: Yes (Other)
  Sender: FDA-Public Use
  Company Number: A0914354A

PATIENT
  Age: 53 Year
  Sex: Female

DRUGS (1)
  1. ASPIRIN + CAFFEINE + PARACETAMOL (FORMULATION UNKNOWN) (ACETAMINOPHEN [Suspect]
     Indication: PRODUCT USED FOR UNKNOWN INDICATION

REACTIONS (10)
  - MATERNAL EXPOSURE DURING PREGNANCY [None]
  - DENTAL CARIES [None]
  - TOOTH INFECTION [None]
  - GASTRITIS EROSIVE [None]
  - PREGNANCY [None]
  - EAR INFECTION [None]
  - TOOTH EROSION [None]
  - PRODUCT QUALITY ISSUE [None]
  - DEPENDENCE [None]
  - ORAL INFECTION [None]
